FAERS Safety Report 9322235 (Version 1)
Quarter: 2013Q2

REPORT INFORMATION
  Report Type: Spontaneous
  Country: US (occurrence: US)
  Receive Date: 20130531
  Receipt Date: 20130531
  Transmission Date: 20140414
  Serious: Yes (Other)
  Sender: FDA-Public Use
  Company Number: US-VIIV HEALTHCARE LIMITED-A1025108A

PATIENT
  Age: 57 Year
  Sex: Male

DRUGS (1)
  1. EPIVIR [Suspect]
     Indication: PRODUCT USED FOR UNKNOWN INDICATION
     Dosage: 300MG UNKNOWN
     Dates: start: 20120706

REACTIONS (1)
  - Hospitalisation [Unknown]
